FAERS Safety Report 23465032 (Version 6)
Quarter: 2025Q2

REPORT INFORMATION
  Report Type: Report from Study
  Country: CA (occurrence: CA)
  Receive Date: 20240201
  Receipt Date: 20250415
  Transmission Date: 20250716
  Serious: Yes (Other)
  Sender: TAKEDA
  Company Number: CA-TAKEDA-2024TUS006848

PATIENT
  Age: 79 Year
  Sex: Female

DRUGS (13)
  1. VEDOLIZUMAB [Suspect]
     Active Substance: VEDOLIZUMAB
     Indication: Colitis ulcerative
  2. VEDOLIZUMAB [Suspect]
     Active Substance: VEDOLIZUMAB
     Indication: Colitis ulcerative
     Dosage: 108 MILLIGRAM, Q2WEEKS
     Dates: start: 20240305
  3. OMEGA 3 [Concomitant]
     Active Substance: CAPSAICIN
  4. CALCIUM [Concomitant]
     Active Substance: CALCIUM
  5. VITAMIN D [Concomitant]
     Active Substance: VITAMIN D NOS
  6. Hairgro [Concomitant]
  7. IRBESARTAN [Concomitant]
     Active Substance: IRBESARTAN
  8. RUPATADINE FUMARATE [Concomitant]
     Active Substance: RUPATADINE FUMARATE
  9. IMOVANE [Concomitant]
     Active Substance: ZOPICLONE
     Indication: Sleep disorder
  10. SYNTHROID [Concomitant]
     Active Substance: LEVOTHYROXINE SODIUM
  11. TYLENOL ARTHRITIS PAIN [Concomitant]
     Active Substance: ACETAMINOPHEN
  12. Genacol [Concomitant]
  13. PREDNISONE [Concomitant]
     Active Substance: PREDNISONE

REACTIONS (14)
  - Haematochezia [Not Recovered/Not Resolved]
  - Basal cell carcinoma [Unknown]
  - Defaecation urgency [Not Recovered/Not Resolved]
  - Mucous stools [Not Recovered/Not Resolved]
  - Frequent bowel movements [Not Recovered/Not Resolved]
  - Gastrointestinal motility disorder [Not Recovered/Not Resolved]
  - Injection site warmth [Unknown]
  - Tooth abscess [Unknown]
  - Tooth fracture [Unknown]
  - Injection site pruritus [Unknown]
  - Injection site erythema [Unknown]
  - Abdominal pain [Not Recovered/Not Resolved]
  - Erythema [Unknown]
  - Haemorrhoids [Unknown]

NARRATIVE: CASE EVENT DATE: 20240612
